FAERS Safety Report 6631834-0 (Version None)
Quarter: 2010Q1

REPORT INFORMATION
  Report Type: 
  Country: None (occurrence: None)
  Receive Date: 20100312
  Receipt Date: 20100302
  Transmission Date: 20100710
  Serious: Yes (Hospitalization)
  Sender: FDA-Public Use
  Company Number: ES-ROCHE-688416

PATIENT
  Age: 46 Year
  Sex: Female

DRUGS (7)
  1. DIAZEPAM [Suspect]
     Indication: ANXIETY
     Route: 048
     Dates: start: 20080101, end: 20091123
  2. IBUPROFENO [Suspect]
     Indication: PYREXIA
     Route: 048
     Dates: start: 20091108, end: 20091123
  3. PARACETAMOL [Suspect]
     Indication: RESPIRATORY TRACT INFECTION
     Route: 048
     Dates: start: 20091108, end: 20091123
  4. OMEPRAZOLE [Suspect]
     Indication: PROPHYLAXIS
     Route: 048
     Dates: start: 20080101, end: 20091123
  5. NOCTAMID [Suspect]
     Indication: ANXIETY
     Route: 048
     Dates: start: 20080101, end: 20091123
  6. RISPERDAL [Suspect]
     Indication: SCHIZOPHRENIA
     Route: 048
     Dates: start: 20080101, end: 20091123
  7. SEROXAT [Suspect]
     Indication: DEPRESSION
     Route: 048
     Dates: start: 20080101, end: 20091123

REACTIONS (4)
  - DEPRESSED LEVEL OF CONSCIOUSNESS [None]
  - INAPPROPRIATE ANTIDIURETIC HORMONE SECRETION [None]
  - RENAL FAILURE ACUTE [None]
  - THROMBOCYTOPENIA [None]
